FAERS Safety Report 15847024 (Version 1)
Quarter: 2019Q1

REPORT INFORMATION
  Report Type: Spontaneous
  Country: US (occurrence: US)
  Receive Date: 20190121
  Receipt Date: 20190121
  Transmission Date: 20190417
  Serious: Yes (Life-Threatening, Hospitalization, Other)
  Sender: FDA-Public Use
  Company Number: US-AUROBINDO-AUR-APL-2019-000107

PATIENT
  Age: 27 Year
  Sex: Female

DRUGS (2)
  1. TRIMETHOPRIM+SULFAMETHOXAZOLE [Suspect]
     Active Substance: SULFAMETHOXAZOLE\TRIMETHOPRIM
     Indication: CYSTITIS
     Dosage: 4 DOSAGE FORM, IN TOTAL
     Route: 065
  2. TRIMETHOPRIM+SULFAMETHOXAZOLE [Suspect]
     Active Substance: SULFAMETHOXAZOLE\TRIMETHOPRIM
     Indication: URINARY TRACT INFECTION
     Dosage: 2 DOSAGE FORM, IN TOTAL
     Route: 065

REACTIONS (21)
  - Conjunctival disorder [Recovered/Resolved]
  - Oral mucosal exfoliation [Recovered/Resolved]
  - Papule [Recovered/Resolved]
  - Pyrexia [Recovered/Resolved]
  - Swelling face [Recovered/Resolved]
  - Skin exfoliation [Recovered/Resolved]
  - Stevens-Johnson syndrome [Recovered/Resolved]
  - Lip swelling [Recovered/Resolved]
  - Vulvovaginal ulceration [Recovered/Resolved]
  - Rash erythematous [Recovered/Resolved]
  - Skin lesion [Recovered/Resolved]
  - Vulvovaginitis [Recovered/Resolved]
  - Vulval cellulitis [Recovered/Resolved]
  - Periorbital swelling [Recovered/Resolved]
  - Oropharyngeal plaque [Recovered/Resolved]
  - Oedema [Recovered/Resolved]
  - Vaginal lesion [Recovered/Resolved]
  - Vulvovaginal pain [Recovered/Resolved]
  - Erythema [Recovered/Resolved]
  - Vaginal ulceration [Recovered/Resolved]
  - Pharyngeal exfoliation [Recovered/Resolved]
